FAERS Safety Report 9970721 (Version 1)
Quarter: 2014Q1

REPORT INFORMATION
  Report Type: Report from Study
  Country: US (occurrence: US)
  Receive Date: 20140306
  Receipt Date: 20140306
  Transmission Date: 20141002
  Serious: No
  Sender: FDA-Public Use
  Company Number: US-ABBVIE-13P-163-1149494-00

PATIENT
  Age: 21 Year
  Sex: Male
  Weight: 69.46 kg

DRUGS (2)
  1. HUMIRA [Suspect]
     Indication: JUVENILE IDIOPATHIC ARTHRITIS
  2. ADVIL [Concomitant]
     Indication: PAIN

REACTIONS (3)
  - Back pain [Not Recovered/Not Resolved]
  - Nasopharyngitis [Recovered/Resolved]
  - Arthritis [Not Recovered/Not Resolved]
